FAERS Safety Report 16715076 (Version 5)
Quarter: 2019Q4

REPORT INFORMATION
  Report Type: Spontaneous
  Country: US (occurrence: US)
  Receive Date: 20190819
  Receipt Date: 20191108
  Transmission Date: 20200122
  Serious: Yes (Hospitalization, Other)
  Sender: FDA-Public Use
  Company Number: US-PFIZER INC-2019351876

PATIENT
  Age: 79 Year
  Sex: Male
  Weight: 104 kg

DRUGS (27)
  1. WARFARIN [Concomitant]
     Active Substance: WARFARIN
     Dosage: 5 MG, 1X/DAY(TAKE ONE TABLET BY MOUTH ONCE A DAY IN THE EVENING)
     Route: 048
  2. FUROSEMIDE. [Concomitant]
     Active Substance: FUROSEMIDE
     Dosage: 80 MG, 3X/DAY
  3. PROMETHAZINE DM [Concomitant]
     Active Substance: DEXTROMETHORPHAN HYDROBROMIDE\PROMETHAZINE HYDROCHLORIDE
     Dosage: UNK (6.25 MG-15 MG/5 ML SYRUP TAKE 1 TEASPOON BY MOUTH EVERY FOUR TO SIX HOURS)
     Route: 048
  4. CEFDINIR. [Concomitant]
     Active Substance: CEFDINIR
     Dosage: 300 MG, 2X/DAY
     Route: 048
  5. ISOSORBIDE MONONITRATE. [Concomitant]
     Active Substance: ISOSORBIDE MONONITRATE
     Dosage: 30 MG, 1X/DAY
     Route: 048
  6. LOSARTAN. [Concomitant]
     Active Substance: LOSARTAN
     Dosage: 25 MG, UNK
  7. ZOLPIDEM [Concomitant]
     Active Substance: ZOLPIDEM TARTRATE
     Dosage: 10 MG, 1X/DAY (TAKE 1 TABLET AT BEDTIME)
  8. FUROSEMIDE. [Concomitant]
     Active Substance: FUROSEMIDE
     Dosage: 80 MG, 2X/DAY
     Route: 048
  9. ATORVASTATIN [Concomitant]
     Active Substance: ATORVASTATIN
     Dosage: 80 MG, 1X/DAY
     Route: 048
  10. NITROGLYCERIN. [Concomitant]
     Active Substance: NITROGLYCERIN
     Indication: CHEST PAIN
     Dosage: 0.4 MG, AS NEEDED(1 TABLET UNDER TONGUE)
     Route: 060
  11. ROSUVASTATIN. [Concomitant]
     Active Substance: ROSUVASTATIN
     Indication: BLOOD CHOLESTEROL ABNORMAL
     Dosage: 10 MG, 1X/DAY
     Route: 048
  12. METOLAZONE. [Concomitant]
     Active Substance: METOLAZONE
     Dosage: 2.5 MG, 1X/DAY
     Route: 048
  13. ALLOPURINOL. [Concomitant]
     Active Substance: ALLOPURINOL
     Dosage: 100 MG, UNK
  14. PANTOPRAZOLE [Concomitant]
     Active Substance: PANTOPRAZOLE
     Dosage: 40 MG, 1X/DAY
     Route: 048
  15. TAMSULOSIN [Concomitant]
     Active Substance: TAMSULOSIN
     Dosage: 0.4 MG, 2X/DAY
     Route: 048
  16. WARFARIN [Concomitant]
     Active Substance: WARFARIN
     Indication: INTERNATIONAL NORMALISED RATIO ABNORMAL
     Dosage: 1 MG, UNK
     Dates: start: 1996
  17. METOLAZONE. [Concomitant]
     Active Substance: METOLAZONE
     Dosage: UNK UNK, DAILY (2/2 MG)
  18. LYRICA [Suspect]
     Active Substance: PREGABALIN
     Indication: NEUROPATHY PERIPHERAL
     Dosage: 75 MG, 3X/DAY
  19. CLOPIDOGREL [Concomitant]
     Active Substance: CLOPIDOGREL BISULFATE
     Dosage: 75 MG, 1X/DAY
     Route: 048
  20. ESZOPICLONE. [Concomitant]
     Active Substance: ESZOPICLONE
     Dosage: 2 MG, UNK
  21. NYSTATIN AND TRIAMCINOLONE [Concomitant]
     Active Substance: NYSTATIN\TRIAMCINOLONE ACETONIDE
     Dosage: UNK, 2X/DAY(100,000 UNIT/G-0.1 % TOPICAL CREAM 1 A SMALL AMOUNT TO AFFECTED)
     Route: 061
  22. CARVEDILOL. [Concomitant]
     Active Substance: CARVEDILOL
     Dosage: 25 MG, 2X/DAY
     Route: 048
  23. MELOXICAM. [Concomitant]
     Active Substance: MELOXICAM
     Dosage: 15 MG, AS NEEDED(TAKE 1 TABLET BY MOUTH ONCE A DAY AS NEEDED WITH FOOD)
     Route: 048
  24. LYRICA [Suspect]
     Active Substance: PREGABALIN
     Dosage: 75 MG, 2X/DAY
  25. NOVOLOG [Concomitant]
     Active Substance: INSULIN ASPART
     Dosage: UNK(100 UNIT/ML SOLUTION)
  26. OXYCODONE AND ACETAMINOPHEN [Concomitant]
     Active Substance: ACETAMINOPHEN\OXYCODONE HYDROCHLORIDE
     Dosage: UNK (10-325 MG TABLET)
  27. KLOR-CON M10 [Concomitant]
     Active Substance: POTASSIUM CHLORIDE
     Dosage: UNK UNK, 1X/DAY (TAKE ONE TABLET BY MOUTH ONE TIME DAILY)
     Route: 048

REACTIONS (6)
  - Gait disturbance [Unknown]
  - Fluid retention [Not Recovered/Not Resolved]
  - Cardiac failure [Unknown]
  - Cardiomegaly [Unknown]
  - Weight abnormal [Not Recovered/Not Resolved]
  - Drug dependence [Unknown]
